FAERS Safety Report 9636946 (Version 1)
Quarter: 2013Q4

REPORT INFORMATION
  Report Type: Spontaneous
  Country: US (occurrence: US)
  Receive Date: 20131022
  Receipt Date: 20131022
  Transmission Date: 20140711
  Serious: No
  Sender: FDA-Public Use
  Company Number: US-B.I. PHARMACEUTICALS,INC./RIDGEFIELD-2013-BI-32027BP

PATIENT
  Age: 60 Year
  Sex: Female

DRUGS (20)
  1. JENTADUETO [Suspect]
     Indication: DIABETES MELLITUS
     Dosage: STRENGTH: 2.5 MG / 500 MG; DAILY DOSE: 5 MG/ 1000 MG
     Route: 048
     Dates: start: 20130925
  2. TRIAMTERENE [Concomitant]
     Route: 048
  3. PREVACID [Concomitant]
  4. FOLIC ACID [Concomitant]
     Route: 048
  5. CELEBREX [Concomitant]
     Route: 048
  6. LIOTHYRONINE [Concomitant]
     Route: 048
  7. FISH OIL [Concomitant]
  8. MAGNESIUM [Concomitant]
  9. GLUCOSAMINE/CTYNONDRITIAN [Concomitant]
  10. MUCINEX [Concomitant]
  11. ALLEGRA [Concomitant]
  12. TELMISARTAN [Concomitant]
     Route: 048
  13. TOPROL XL [Concomitant]
     Route: 048
  14. COQ10 [Concomitant]
  15. MULTIVITAMIN [Concomitant]
  16. METHOTREXATE [Concomitant]
     Route: 048
  17. SYNTHROID [Concomitant]
     Route: 048
  18. CYMBALTA [Concomitant]
     Route: 048
  19. GABAPENTIN [Concomitant]
     Route: 048
  20. ESTER C [Concomitant]

REACTIONS (4)
  - Cardiac flutter [Not Recovered/Not Resolved]
  - Micturition frequency decreased [Not Recovered/Not Resolved]
  - Oedema peripheral [Not Recovered/Not Resolved]
  - Headache [Not Recovered/Not Resolved]
